FAERS Safety Report 4294904-0 (Version None)
Quarter: 2004Q1

REPORT INFORMATION
  Report Type: 
  Country: None (occurrence: None)
  Receive Date: 20040216
  Receipt Date: 20030218
  Transmission Date: 20041129
  Serious: No
  Sender: FDA-Public Use
  Company Number: US-GLAXOSMITHKLINE-A0397136A

PATIENT
  Age: 6 Year
  Sex: Female

DRUGS (7)
  1. LAMICTAL [Suspect]
     Dosage: 87.5MG PER DAY
     Route: 048
     Dates: start: 20010101
  2. PHENOBARBITAL TAB [Concomitant]
     Dosage: 112.5MG PER DAY
  3. TRILEPTAL [Concomitant]
     Dosage: 5.5ML TWICE PER DAY
  4. CEFTIN [Concomitant]
     Route: 065
  5. COLD MEDICATION [Concomitant]
  6. TYLENOL (CAPLET) [Concomitant]
  7. ADVIL [Concomitant]

REACTIONS (2)
  - PRURITUS [None]
  - RASH [None]
